FAERS Safety Report 9664889 (Version 1)
Quarter: 2013Q4

REPORT INFORMATION
  Report Type: Spontaneous
  Country: GB (occurrence: GB)
  Receive Date: 20131101
  Receipt Date: 20131101
  Transmission Date: 20140711
  Serious: Yes (Other)
  Sender: FDA-Public Use
  Company Number: GB-GLAXOSMITHKLINE-B0935295A

PATIENT
  Age: 26 Year
  Sex: Female
  Weight: 63 kg

DRUGS (4)
  1. ATOVAQUONE [Suspect]
  2. FOLIC ACID [Suspect]
     Dosage: 1IUAX PER DAY
  3. PROGUANIL [Suspect]
     Indication: MALARIA PROPHYLAXIS
  4. STAMARIL [Suspect]
     Indication: IMMUNISATION
     Dates: start: 20130805, end: 20130805

REACTIONS (2)
  - Vaginal haemorrhage [Unknown]
  - Exposure during pregnancy [Unknown]
